APPROVED DRUG PRODUCT: LISINOPRIL
Active Ingredient: LISINOPRIL
Strength: 2.5MG
Dosage Form/Route: TABLET;ORAL
Application: A077622 | Product #001 | TE Code: AB
Applicant: AUROBINDO PHARMA LTD
Approved: Feb 22, 2006 | RLD: No | RS: No | Type: RX